FAERS Safety Report 4849636-4 (Version None)
Quarter: 2005Q4

REPORT INFORMATION
  Report Type: 
  Country: None (occurrence: None)
  Receive Date: 20051115
  Receipt Date: 20050810
  Transmission Date: 20060501
  Serious: No
  Sender: FDA-Public Use
  Company Number: S05-USA-04031-01

PATIENT
  Age: 71 Year
  Sex: Male

DRUGS (10)
  1. NAMENDA [Suspect]
     Indication: DEMENTIA
     Dosage: 15 MG QD PO
     Route: 048
     Dates: start: 20050730, end: 20050805
  2. NAMENDA [Suspect]
     Indication: DEMENTIA
     Dosage: 10 MG BID PO
     Route: 048
     Dates: start: 20050806
  3. NAMENDA [Suspect]
     Indication: DEMENTIA
     Dosage: 5 MG QD PO
     Route: 048
     Dates: start: 20050716, end: 20050722
  4. NAMENDA [Suspect]
     Indication: DEMENTIA
     Dosage: 5 MG BID PO
     Route: 048
     Dates: start: 20050723, end: 20050729
  5. NOVOLOG (INSULIN ASPART) BABYASPIRIN MULTIVITAMIN [Concomitant]
  6. ZOCOR [Concomitant]
  7. AVANDIA [Concomitant]
  8. COZAAR [Concomitant]
  9. PLAVIX (CLOPIDOGREL SULFATE) S [Concomitant]
  10. TOOL SOFTENER (NOS) [Concomitant]

REACTIONS (2)
  - BLOOD GLUCOSE INCREASED [None]
  - FATIGUE [None]
